FAERS Safety Report 6385513-8 (Version None)
Quarter: 2009Q4

REPORT INFORMATION
  Report Type: 
  Country: None (occurrence: None)
  Receive Date: 20091002
  Receipt Date: 20080923
  Transmission Date: 20100525
  Serious: No
  Sender: FDA-Public Use
  Company Number: US-ASTRAZENECA-2008UW19963

PATIENT
  Age: 71 Year
  Sex: Female
  Weight: 48.1 kg

DRUGS (2)
  1. ARIMIDEX [Suspect]
     Indication: BREAST CANCER
     Route: 048
  2. MUCINEX [Concomitant]

REACTIONS (4)
  - HOT FLUSH [None]
  - HYPOAESTHESIA [None]
  - TACHYCARDIA [None]
  - TREMOR [None]
